FAERS Safety Report 11161891 (Version 8)
Quarter: 2015Q3

REPORT INFORMATION
  Report Type: Spontaneous
  Country: US (occurrence: US)
  Receive Date: 20150604
  Receipt Date: 20150825
  Transmission Date: 20151125
  Serious: Yes (Other)
  Sender: FDA-Public Use
  Company Number: US-SA-2014SA098189

PATIENT
  Age: 56 Year
  Sex: Male

DRUGS (7)
  1. LANTUS SOLOSTAR [Suspect]
     Active Substance: INSULIN GLARGINE
     Indication: TYPE 2 DIABETES MELLITUS
     Dosage: DOSE:36 UNIT(S)
     Route: 065
     Dates: start: 201312, end: 201403
  2. LANTUS SOLOSTAR [Suspect]
     Active Substance: INSULIN GLARGINE
     Indication: TYPE 2 DIABETES MELLITUS
     Dosage: DOSE:55 UNIT(S)
     Route: 065
     Dates: start: 201407
  3. LANTUS SOLOSTAR [Suspect]
     Active Substance: INSULIN GLARGINE
     Indication: TYPE 2 DIABETES MELLITUS
     Dosage: DOSE:25 UNIT(S)
     Route: 065
     Dates: start: 201405
  4. SOLOSTAR [Concomitant]
     Active Substance: DEVICE
  5. HUMALOG [Concomitant]
     Active Substance: INSULIN LISPRO
  6. LANTUS SOLOSTAR [Suspect]
     Active Substance: INSULIN GLARGINE
     Indication: TYPE 2 DIABETES MELLITUS
     Dosage: DOSE:55 UNIT(S)
     Route: 065
     Dates: end: 20140714
  7. LOSARTAN. [Concomitant]
     Active Substance: LOSARTAN

REACTIONS (31)
  - Asthenia [Recovered/Resolved]
  - Eye disorder [Unknown]
  - Feeling cold [Unknown]
  - Dyspepsia [Unknown]
  - Oedema [Unknown]
  - Unevaluable event [Unknown]
  - Cardiac discomfort [Unknown]
  - Dizziness [Unknown]
  - Sleep disorder [Unknown]
  - Ear pain [Unknown]
  - Pain [Unknown]
  - Syncope [Unknown]
  - Muscular weakness [Unknown]
  - Sensation of foreign body [Unknown]
  - Pain in extremity [Unknown]
  - Dysgeusia [Unknown]
  - Feeling abnormal [Unknown]
  - Mental impairment [Unknown]
  - Skin warm [Unknown]
  - Pain in extremity [Recovered/Resolved]
  - Hypoaesthesia [Recovered/Resolved]
  - Drooling [Unknown]
  - Heart rate decreased [Unknown]
  - Non-cardiac chest pain [Recovered/Resolved]
  - Dyspnoea [Unknown]
  - Logorrhoea [Unknown]
  - Drug dose omission [Unknown]
  - Incorrect product storage [Unknown]
  - Chest pain [Unknown]
  - Extrasystoles [Unknown]
  - Bladder dysfunction [Unknown]

NARRATIVE: CASE EVENT DATE: 20140715
